FAERS Safety Report 6432675-X (Version None)
Quarter: 2009Q4

REPORT INFORMATION
  Report Type: 
  Country: None (occurrence: None)
  Receive Date: 20091109
  Receipt Date: 20091030
  Transmission Date: 20100525
  Serious: Yes (Other)
  Sender: FDA-Public Use
  Company Number: GXKR2009GB11970

PATIENT
  Age: 44 Year
  Sex: Male

DRUGS (7)
  1. ACETYLSALICYLIC ACID SRT [Suspect]
     Indication: MYOCARDIAL INFARCTION
     Dosage: 300 MG, UNK
     Route: 065
  2. CLOPIDOGREL (NGX) [Suspect]
     Indication: MYOCARDIAL INFARCTION
     Dosage: 300 MG, UNK
     Route: 065
  3. HEPARIN (NGX) [Suspect]
     Indication: MYOCARDIAL INFARCTION
     Dosage: 18 UNITS/KG/H
  4. TENECTEPLASE [Suspect]
     Indication: THROMBOLYSIS
     Dosage: 40 MG, UNK
     Route: 042
  5. TENECTEPLASE [Suspect]
     Indication: MYOCARDIAL INFARCTION
  6. GLYCERYL TRINITRATE [Concomitant]
     Indication: PAIN
     Dosage: 2.4 ML/H
     Route: 042
  7. GLYCERYL TRINITRATE [Concomitant]
     Dosage: TITRATED

REACTIONS (8)
  - CONTUSION [None]
  - DIPLOPIA [None]
  - EYE DISORDER [None]
  - EYE MOVEMENT DISORDER [None]
  - HAEMATOMA [None]
  - HEADACHE [None]
  - SKIN DISCOLOURATION [None]
  - VISUAL ACUITY REDUCED [None]
